FAERS Safety Report 20613893 (Version 3)
Quarter: 2022Q2

REPORT INFORMATION
  Report Type: Report from Study
  Country: US (occurrence: US)
  Receive Date: 20220319
  Receipt Date: 20220403
  Transmission Date: 20220720
  Serious: Yes (Other)
  Sender: FDA-Public Use
  Company Number: US-NOVARTISTESTPH-NVSC2022US063039

PATIENT
  Age: 46 Year
  Sex: Female

DRUGS (3)
  1. PREDNISOLONE [Suspect]
     Active Substance: PREDNISOLONE
     Indication: Product used for unknown indication
     Route: 065
  2. DEXAMETHASONE [Suspect]
     Active Substance: DEXAMETHASONE
     Indication: Product used for unknown indication
     Dosage: UNK
     Route: 065
  3. DAPSONE [Concomitant]
     Active Substance: DAPSONE
     Indication: Product used for unknown indication
     Route: 065

REACTIONS (21)
  - Immune thrombocytopenia [Unknown]
  - Fatigue [Unknown]
  - Purpura [Unknown]
  - Dizziness [Unknown]
  - Platelet count abnormal [Unknown]
  - Cognitive disorder [Unknown]
  - Loss of personal independence in daily activities [Unknown]
  - Depressed mood [Unknown]
  - Feeling abnormal [Unknown]
  - Bradykinesia [Unknown]
  - Restlessness [Unknown]
  - Negative thoughts [Unknown]
  - Slow speech [Unknown]
  - Appetite disorder [Unknown]
  - Sleep disorder [Unknown]
  - Affect lability [Unknown]
  - Affective disorder [Unknown]
  - Stress [Unknown]
  - Anxiety [Unknown]
  - Asthenia [Unknown]
  - Drug ineffective [Unknown]
